FAERS Safety Report 17438370 (Version 1)
Quarter: 2020Q1

REPORT INFORMATION
  Report Type: Spontaneous
  Country: US (occurrence: US)
  Receive Date: 20200204
  Receipt Date: 20200204
  Transmission Date: 20200409
  Serious: Yes (Death, Hospitalization)
  Sender: FDA-Public Use
  Company Number: None

PATIENT
  Age: 63 Year
  Sex: Male
  Weight: 24.72 kg

DRUGS (1)
  1. VITAMIN D [Suspect]
     Active Substance: VITAMIN D NOS
     Indication: VITAMIN D DEFICIENCY
     Route: 048
     Dates: start: 20191223

REACTIONS (5)
  - Respiratory distress [None]
  - Pseudomonas infection [None]
  - Tachycardia [None]
  - Hepatic failure [None]
  - Septic shock [None]

NARRATIVE: CASE EVENT DATE: 20200131
